FAERS Safety Report 6867423-2 (Version None)
Quarter: 2010Q3

REPORT INFORMATION
  Report Type: 
  Country: None (occurrence: None)
  Receive Date: 20100722
  Receipt Date: 20100713
  Transmission Date: 20110219
  Serious: Yes (Other)
  Sender: FDA-Public Use
  Company Number: JP-PFIZER INC-2010087274

PATIENT

DRUGS (1)
  1. ZITHROMAC SR [Suspect]
     Dosage: 2 G, 1X/DAY
     Route: 048

REACTIONS (2)
  - DYSPNOEA [None]
  - FACE OEDEMA [None]
